FAERS Safety Report 4758682-0 (Version None)
Quarter: 2005Q3

REPORT INFORMATION
  Report Type: 
  Country: None (occurrence: None)
  Receive Date: 20050829
  Receipt Date: 20050816
  Transmission Date: 20060218
  Serious: Yes (Other)
  Sender: FDA-Public Use
  Company Number: 12158

PATIENT
  Age: 24 Month

DRUGS (1)
  1. VINBLASTINE [Suspect]
     Indication: LANGERHANS' CELL GRANULOMATOSIS

REACTIONS (1)
  - EYELID PTOSIS [None]
